FAERS Safety Report 16805522 (Version 1)
Quarter: 2019Q3

REPORT INFORMATION
  Report Type: Spontaneous
  Country: US (occurrence: US)
  Receive Date: 20190913
  Receipt Date: 20190913
  Transmission Date: 20191005
  Serious: Yes (Hospitalization)
  Sender: FDA-Public Use
  Company Number: US-MYLANLABS-2019M1085322

PATIENT
  Age: 53 Year
  Sex: Male

DRUGS (2)
  1. METHADONE [Suspect]
     Active Substance: METHADONE HYDROCHLORIDE
     Dosage: FOR SUBSEQUENT FIVE YEARS
     Route: 065
  2. METHADONE [Suspect]
     Active Substance: METHADONE HYDROCHLORIDE
     Indication: DRUG USE DISORDER
     Dosage: FOR TEN YEARS
     Route: 065

REACTIONS (2)
  - Mental status changes [Recovering/Resolving]
  - Hypoglycaemia [Not Recovered/Not Resolved]
